FAERS Safety Report 12197391 (Version 1)
Quarter: 2016Q1

REPORT INFORMATION
  Report Type: Report from Study
  Country: BR (occurrence: BR)
  Receive Date: 20160322
  Receipt Date: 20160322
  Transmission Date: 20160526
  Serious: Yes (Hospitalization)
  Sender: FDA-Public Use
  Company Number: PHHY2016BR036444

PATIENT
  Age: 65 Year
  Sex: Male
  Weight: 78 kg

DRUGS (1)
  1. FORASEQ [Suspect]
     Active Substance: BUDESONIDE\FORMOTEROL FUMARATE
     Indication: ASTHMA
     Dosage: BUDESONIDE 400 UG AND FORMOTEROL FUMARATE 12 UG, BID
     Route: 055

REACTIONS (3)
  - Inflammation [Unknown]
  - Asthma [Unknown]
  - Hypoacusis [Unknown]

NARRATIVE: CASE EVENT DATE: 201508
